FAERS Safety Report 6400559-9 (Version None)
Quarter: 2009Q4

REPORT INFORMATION
  Report Type: 
  Country: None (occurrence: None)
  Receive Date: 20091013
  Receipt Date: 20091013
  Transmission Date: 20100525
  Serious: Yes (Hospitalization, Disabling, Other)
  Sender: FDA-Public Use
  Company Number: None

PATIENT
  Age: 41 Year
  Sex: Female
  Weight: 109.7705 kg

DRUGS (3)
  1. NUCYNTA MCNEIL [Suspect]
     Indication: ACCIDENT AT WORK
     Dosage: 50MG. PO
     Route: 048
     Dates: start: 20090717, end: 20090717
  2. NUCYNTA MCNEIL [Suspect]
     Indication: PAIN
     Dosage: 50MG. PO
     Route: 048
     Dates: start: 20090717, end: 20090717
  3. PROMETHAZINE [Suspect]
     Indication: NAUSEA
     Dosage: IM
     Route: 030
     Dates: start: 20090718, end: 20090718

REACTIONS (14)
  - BURNING SENSATION [None]
  - DIZZINESS [None]
  - HAEMATEMESIS [None]
  - HALLUCINATION, AUDITORY [None]
  - HEADACHE [None]
  - HYPOAESTHESIA [None]
  - INJECTION SITE PAIN [None]
  - NAUSEA [None]
  - OEDEMA [None]
  - PAIN [None]
  - PAIN IN EXTREMITY [None]
  - PHOTOPHOBIA [None]
  - SENSATION OF HEAVINESS [None]
  - SWELLING [None]
